FAERS Safety Report 7883648-1 (Version None)
Quarter: 2011Q4

REPORT INFORMATION
  Report Type: 
  Country: None (occurrence: None)
  Receive Date: 20111102
  Receipt Date: 20111026
  Transmission Date: 20120403
  Serious: Yes (Life-Threatening, Hospitalization)
  Sender: FDA-Public Use
  Company Number: IT-BAYER-2011-104382

PATIENT
  Age: 28 Year
  Sex: Female

DRUGS (5)
  1. BETAMETHASONE SODIUM PHOSPHATE [Concomitant]
     Dosage: UNK
     Route: 048
  2. FOSTER [Concomitant]
     Dosage: UNK
     Route: 055
  3. FOLINA [Concomitant]
     Dosage: DAILY DOSE 5 MG
     Route: 048
     Dates: start: 20110220, end: 20111023
  4. ASPIRIN [Suspect]
     Indication: PLATELET AGGREGATION INHIBITION
     Dosage: DAILY DOSE 50 MG
     Route: 048
     Dates: start: 20110520, end: 20111023
  5. FERROUS SULFATE TAB [Concomitant]
     Dosage: DAILY DOSE 105 MG
     Route: 048
     Dates: start: 20111016, end: 20111023

REACTIONS (1)
  - GASTRIC ULCER HAEMORRHAGE [None]
